FAERS Safety Report 13628435 (Version 1)
Quarter: 2017Q2

REPORT INFORMATION
  Report Type: Spontaneous
  Country: US (occurrence: US)
  Receive Date: 20170607
  Receipt Date: 20170607
  Transmission Date: 20170830
  Serious: No
  Sender: FDA-Public Use
  Company Number: US-TARO-2016TAR00749

PATIENT
  Age: 5 Year
  Sex: Female
  Weight: 15.87 kg

DRUGS (2)
  1. CHILDRENS CETIRIZINE HYDROCHLORIDE SUGAR FREE GRAPE [Suspect]
     Active Substance: CETIRIZINE HYDROCHLORIDE
     Indication: RHINORRHOEA
     Dosage: 5 ML, ONCE
     Route: 048
     Dates: start: 20160904, end: 20160904
  2. ALBUTEROL NEBULIZER [Concomitant]
     Active Substance: ALBUTEROL

REACTIONS (1)
  - Rash [Recovering/Resolving]

NARRATIVE: CASE EVENT DATE: 20160905
